FAERS Safety Report 8986518 (Version 2)
Quarter: 2013Q2

REPORT INFORMATION
  Report Type: Spontaneous
  Country: NO (occurrence: NO)
  Receive Date: 20121226
  Receipt Date: 20130605
  Transmission Date: 20140414
  Serious: Yes (Other)
  Sender: FDA-Public Use
  Company Number: PHHY2008NO09809

PATIENT
  Age: 35 Year
  Sex: Female

DRUGS (4)
  1. RITALIN [Suspect]
     Indication: ATTENTION DEFICIT/HYPERACTIVITY DISORDER
     Dosage: 40 MG, DAILY
     Route: 048
  2. RITALIN [Suspect]
     Dosage: 160 MG, UNK
     Dates: end: 2011
  3. VALIUM [Concomitant]
     Dosage: 1 DF, IN THE EVENING
     Dates: end: 2012
  4. SELOZOK [Concomitant]
     Indication: TACHYCARDIA
     Dosage: UNK
     Dates: start: 1989

REACTIONS (5)
  - Visual impairment [Not Recovered/Not Resolved]
  - Depression [Unknown]
  - Cardiac arrest [Unknown]
  - Alopecia [Not Recovered/Not Resolved]
  - Balance disorder [Unknown]
